FAERS Safety Report 7389501-4 (Version None)
Quarter: 2011Q2

REPORT INFORMATION
  Report Type: 
  Country: None (occurrence: None)
  Receive Date: 20110401
  Receipt Date: 20110321
  Transmission Date: 20111010
  Serious: Yes (Disabling, Other)
  Sender: FDA-Public Use
  Company Number: US-BAYER-2011-012448

PATIENT
  Sex: Female

DRUGS (14)
  1. OMNISCAN [Suspect]
     Indication: ANGIOGRAM
  2. OMNISCAN [Suspect]
     Indication: ABDOMINAL PAIN
  3. MAGNEVIST [Suspect]
     Indication: NUCLEAR MAGNETIC RESONANCE IMAGING
     Dosage: UNK UNK, ONCE
     Route: 042
     Dates: start: 20030812, end: 20030812
  4. MAGNEVIST [Suspect]
     Indication: ANGIOGRAM
     Dosage: UNK
     Dates: start: 20050412, end: 20050412
  5. OMNISCAN [Suspect]
     Indication: NUCLEAR MAGNETIC RESONANCE IMAGING
     Dosage: UNK
     Route: 042
     Dates: start: 20051027, end: 20051027
  6. MORPHINE [Concomitant]
     Indication: PAIN
     Dosage: 30 MG, BID
     Dates: start: 20080101
  7. CALCITRIOL [Concomitant]
     Dosage: 0.25 MG, QD
  8. OPTIMARK [Suspect]
     Indication: PRODUCT USED FOR UNKNOWN INDICATION
  9. EPOGEN [Concomitant]
     Dosage: UNK
     Dates: start: 20010101
  10. IRON [IRON] [Concomitant]
     Dosage: UNK
     Dates: start: 20010101
  11. CLONAZEPAM [Concomitant]
     Indication: ANXIETY
     Dosage: 0.5 MG, Q8H
  12. GABAPENTIN [Concomitant]
     Indication: NEUROPATHY PERIPHERAL
     Dosage: 300 MG, BID
  13. MAGNEVIST [Suspect]
     Indication: NUCLEAR MAGNETIC RESONANCE IMAGING BRAIN
     Dosage: UNK UNK, ONCE
     Route: 042
     Dates: start: 20030808, end: 20030808
  14. MAGNEVIST [Suspect]
     Indication: CONVULSION
     Dosage: 20 ML, ONCE
     Route: 042
     Dates: start: 20060510, end: 20060510

REACTIONS (5)
  - ABASIA [None]
  - SKIN TIGHTNESS [None]
  - NEPHROGENIC SYSTEMIC FIBROSIS [None]
  - PAIN [None]
  - MUSCLE CONTRACTURE [None]
